FAERS Safety Report 16054679 (Version 1)
Quarter: 2019Q1

REPORT INFORMATION
  Report Type: Spontaneous
  Country: US (occurrence: US)
  Receive Date: 20190309
  Receipt Date: 20190309
  Transmission Date: 20190418
  Serious: Yes (Other)
  Sender: FDA-Public Use
  Company Number: PHEH2019US009898

PATIENT
  Sex: Female

DRUGS (1)
  1. GLEEVEC [Suspect]
     Active Substance: IMATINIB MESYLATE
     Indication: CHRONIC MYELOID LEUKAEMIA
     Dosage: 2 DF, QD
     Route: 048
     Dates: start: 2004, end: 2005

REACTIONS (7)
  - Diverticulitis [Unknown]
  - Swelling [Unknown]
  - Diarrhoea [Unknown]
  - Osteoarthritis [Unknown]
  - Abscess [Unknown]
  - Obesity [Unknown]
  - Fluid retention [Unknown]
